FAERS Safety Report 7149613-7 (Version None)
Quarter: 2010Q4

REPORT INFORMATION
  Report Type: 
  Country: None (occurrence: None)
  Receive Date: 20101209
  Receipt Date: 20101126
  Transmission Date: 20110411
  Serious: Yes (Death, Hospitalization)
  Sender: FDA-Public Use
  Company Number: CA-GENENTECH-310675

PATIENT
  Sex: Male
  Weight: 54 kg

DRUGS (1)
  1. XOLAIR [Suspect]
     Indication: ASTHMA
     Dosage: 300 MG, Q2W
     Route: 058
     Dates: start: 20060222, end: 20101110

REACTIONS (8)
  - BLISTER [None]
  - CONTUSION [None]
  - DEATH [None]
  - DRUG DOSE OMISSION [None]
  - EXCORIATION [None]
  - FALL [None]
  - SCIATIC NERVE INJURY [None]
  - SPINAL FRACTURE [None]
